APPROVED DRUG PRODUCT: CYSTADROPS
Active Ingredient: CYSTEAMINE HYDROCHLORIDE
Strength: EQ 0.37% BASE
Dosage Form/Route: SOLUTION/DROPS;OPHTHALMIC
Application: N211302 | Product #001
Applicant: RECORDATI RARE DISEASES INC
Approved: Aug 19, 2020 | RLD: Yes | RS: Yes | Type: RX